FAERS Safety Report 8100259-3 (Version None)
Quarter: 2012Q1

REPORT INFORMATION
  Report Type: 
  Country: None (occurrence: None)
  Receive Date: 20120131
  Receipt Date: 20120120
  Transmission Date: 20120608
  Serious: Yes (Hospitalization)
  Sender: FDA-Public Use
  Company Number: JP-BRISTOL-MYERS SQUIBB COMPANY-16363574

PATIENT
  Age: 75 Year
  Sex: Male

DRUGS (4)
  1. METFORMIN HCL [Suspect]
     Route: 048
     Dates: start: 20111121, end: 20111215
  2. GLIMICRON [Concomitant]
     Route: 048
  3. BASEN [Concomitant]
     Route: 048
  4. ACTOS [Concomitant]
     Dates: start: 20070501

REACTIONS (7)
  - CHOLELITHIASIS [None]
  - BACK PAIN [None]
  - CHOLECYSTITIS [None]
  - LIVER DISORDER [None]
  - CHEST DISCOMFORT [None]
  - ASPARTATE AMINOTRANSFERASE INCREASED [None]
  - GAMMA-GLUTAMYLTRANSFERASE INCREASED [None]
